FAERS Safety Report 6179502-6 (Version None)
Quarter: 2009Q2

REPORT INFORMATION
  Report Type: 
  Country: None (occurrence: None)
  Receive Date: 20090505
  Receipt Date: 20090420
  Transmission Date: 20091009
  Serious: Yes (Other)
  Sender: FDA-Public Use
  Company Number: US-ROCHE-628345

PATIENT
  Age: 34 Year
  Sex: Female

DRUGS (2)
  1. DACLIZUMAB [Suspect]
     Indication: MULTIPLE SCLEROSIS RELAPSE
     Route: 065
  2. INTERFERON BETA-1A [Suspect]
     Indication: MULTIPLE SCLEROSIS RELAPSE
     Route: 065

REACTIONS (1)
  - GRANULOMA ANNULARE [None]
